FAERS Safety Report 17876600 (Version 6)
Quarter: 2022Q3

REPORT INFORMATION
  Report Type: Report from Study
  Country: US (occurrence: US)
  Receive Date: 20200609
  Receipt Date: 20220921
  Transmission Date: 20221027
  Serious: Yes (Death, Life-Threatening, Hospitalization)
  Sender: FDA-Public Use
  Company Number: US-JNJFOC-20190128649

PATIENT
  Age: 69 Year
  Sex: Male
  Weight: 79.7 kg

DRUGS (1)
  1. DARATUMUMAB [Suspect]
     Active Substance: DARATUMUMAB
     Indication: Acute myeloid leukaemia
     Dosage: MOST RECENT DOSE PRIOR TO EVENT ONSET RECEIVED ON 08-JAN-2019
     Dates: start: 20181127

REACTIONS (7)
  - Respiratory failure [Fatal]
  - Sepsis [Not Recovered/Not Resolved]
  - Failure to thrive [Not Recovered/Not Resolved]
  - Pneumonia [Not Recovered/Not Resolved]
  - Thrombocytopenia [Not Recovered/Not Resolved]
  - Alanine aminotransferase increased [Not Recovered/Not Resolved]
  - Aspartate aminotransferase increased [Not Recovered/Not Resolved]

NARRATIVE: CASE EVENT DATE: 20190110
